FAERS Safety Report 14375710 (Version 1)
Quarter: 2018Q1

REPORT INFORMATION
  Report Type: Spontaneous
  Country: CZ (occurrence: CZ)
  Receive Date: 20180111
  Receipt Date: 20180111
  Transmission Date: 20180509
  Serious: Yes (Other)
  Sender: FDA-Public Use
  Company Number: CZ-PFIZER INC-2018010664

PATIENT
  Age: 65 Year
  Sex: Male
  Weight: 88 kg

DRUGS (1)
  1. MEDROL [Suspect]
     Active Substance: METHYLPREDNISOLONE
     Indication: SYSTEMIC LUPUS ERYTHEMATOSUS
     Dosage: 4 MG, UNK
     Route: 048
     Dates: start: 20011219

REACTIONS (1)
  - Prostatomegaly [Not Recovered/Not Resolved]

NARRATIVE: CASE EVENT DATE: 20170223
